FAERS Safety Report 18236344 (Version 1)
Quarter: 2020Q3

REPORT INFORMATION
  Report Type: Spontaneous
  Country: JP (occurrence: JP)
  Receive Date: 20200907
  Receipt Date: 20200907
  Transmission Date: 20201103
  Serious: Yes (Death, Hospitalization, Other)
  Sender: FDA-Public Use
  Company Number: JP-IPCA LABORATORIES LIMITED-IPC-2020-JP-002920

PATIENT

DRUGS (1)
  1. WARFARIN [Suspect]
     Active Substance: WARFARIN
     Indication: THROMBOSIS
     Dosage: UNK
     Route: 065

REACTIONS (8)
  - Haemorrhagic diathesis [Fatal]
  - Gastrointestinal haemorrhage [Recovered/Resolved]
  - Disseminated intravascular coagulation [Fatal]
  - Toxic epidermal necrolysis [Fatal]
  - Inflammation [Recovered/Resolved]
  - Sepsis [Fatal]
  - Eosinophilia [Recovered/Resolved]
  - Abscess [Fatal]
